FAERS Safety Report 8889342 (Version 1)
Quarter: 2012Q4

REPORT INFORMATION
  Report Type: Spontaneous
  Country: US (occurrence: None)
  Receive Date: 20121102
  Receipt Date: 20121102
  Transmission Date: 20130627
  Serious: Yes (Other)
  Sender: FDA-Public Use
  Company Number: None

PATIENT
  Age: 46 Year
  Sex: Male
  Weight: 77.11 kg

DRUGS (2)
  1. ROBAXIN [Suspect]
     Indication: MUSCLE RELAXANT THERAPY
     Dosage: 1 tablet by mouth 4x per day po
     Route: 048
     Dates: start: 20121030, end: 20121030
  2. ROBAXIN [Suspect]
     Indication: BACK PAIN
     Dosage: 1 tablet by mouth 4x per day po
     Route: 048
     Dates: start: 20121030, end: 20121030

REACTIONS (5)
  - Swelling [None]
  - Pruritus [None]
  - Erythema [None]
  - Burning sensation [None]
  - Drug hypersensitivity [None]
